FAERS Safety Report 9397820 (Version 2)
Quarter: 2013Q3

REPORT INFORMATION
  Report Type: Spontaneous
  Country: US (occurrence: US)
  Receive Date: 20130712
  Receipt Date: 20130723
  Transmission Date: 20140515
  Serious: No
  Sender: FDA-Public Use
  Company Number: US-PFIZER INC-2013203907

PATIENT
  Age: 85 Year
  Sex: Male
  Weight: 77.1 kg

DRUGS (2)
  1. ELIQUIS [Suspect]
     Dosage: 5 MG, 2X/DAY
     Dates: start: 20130604
  2. AMIODARONE HCL [Suspect]
     Dosage: UNK
     Dates: start: 20130604

REACTIONS (1)
  - Chromaturia [Unknown]
